FAERS Safety Report 10067225 (Version 2)
Quarter: 2014Q3

REPORT INFORMATION
  Report Type: Spontaneous
  Country: US (occurrence: None)
  Receive Date: 20140407
  Receipt Date: 20140924
  Transmission Date: 20150326
  Serious: No
  Sender: FDA-Public Use
  Company Number: 1713747-2014-99939

PATIENT
  Age: 81 Year
  Sex: Female

DRUGS (4)
  1. LIBERTY CYCLER CASSETTE [Concomitant]
     Active Substance: DEVICE
  2. DELFLEX [Suspect]
     Active Substance: CALCIUM CHLORIDE\DEXTROSE MONOHYDRATE\MAGNESIUM CHLORIDE\SODIUM CHLORIDE\SODIUM LACTATE
     Indication: RENAL FAILURE CHRONIC
     Dosage: PERITONEAL DIALYSIS
     Dates: start: 20140228
  3. DELFLEX [Suspect]
     Active Substance: CALCIUM CHLORIDE\DEXTROSE MONOHYDRATE\MAGNESIUM CHLORIDE\SODIUM CHLORIDE\SODIUM LACTATE
     Dosage: PERITONEAL DIALYSIS
     Dates: start: 20140228
  4. LIBERTY CYCLER [Concomitant]
     Active Substance: DEVICE

REACTIONS (4)
  - Peritoneal dialysis complication [None]
  - Peritonitis [None]
  - Injury [None]
  - Peritoneal cloudy effluent [None]

NARRATIVE: CASE EVENT DATE: 20140227
